FAERS Safety Report 25007536 (Version 2)
Quarter: 2025Q1

REPORT INFORMATION
  Report Type: Report from Study
  Country: US (occurrence: US)
  Receive Date: 20250225
  Receipt Date: 20250308
  Transmission Date: 20250408
  Serious: No
  Sender: ACADIA PHARMACEUTICALS
  Company Number: US-ACADIA PHARMACEUTICALS INC.-ACA-2025-TRF-001652

PATIENT
  Sex: Female

DRUGS (2)
  1. DAYBUE [Suspect]
     Active Substance: TROFINETIDE
     Indication: Rett syndrome
     Dosage: 30 MILLILITER, BID
     Route: 048
  2. DAYBUE [Suspect]
     Active Substance: TROFINETIDE
     Dosage: 10 MILLIGRAM, BID
     Route: 048

REACTIONS (4)
  - Illness [Recovered/Resolved]
  - Respiratory syncytial virus infection [Recovered/Resolved]
  - Norovirus infection [Recovered/Resolved]
  - Intentional underdose [Recovered/Resolved]
